FAERS Safety Report 7670157-8 (Version None)
Quarter: 2011Q3

REPORT INFORMATION
  Report Type: 
  Country: None (occurrence: None)
  Receive Date: 20110808
  Receipt Date: 20110729
  Transmission Date: 20111222
  Serious: Yes (Other)
  Sender: FDA-Public Use
  Company Number: US-ASTRAZENECA-2011SE27393

PATIENT
  Age: 70 Year
  Sex: Male

DRUGS (3)
  1. ATACAND [Suspect]
     Route: 048
  2. ATACAND [Suspect]
     Route: 048
  3. CRESTOR [Suspect]
     Route: 048

REACTIONS (2)
  - HYPOTENSION [None]
  - DEMENTIA ALZHEIMER'S TYPE [None]
